FAERS Safety Report 6187787-5 (Version None)
Quarter: 2009Q2

REPORT INFORMATION
  Report Type: 
  Country: None (occurrence: None)
  Receive Date: 20090513
  Receipt Date: 20090511
  Transmission Date: 20091009
  Serious: Yes (Hospitalization)
  Sender: FDA-Public Use
  Company Number: US-BRISTOL-MYERS SQUIBB COMPANY-14619605

PATIENT
  Age: 59 Year
  Sex: Male
  Weight: 65 kg

DRUGS (14)
  1. CISPLATIN [Suspect]
     Indication: OESOPHAGEAL SQUAMOUS CELL CARCINOMA
     Dosage: 25MG/M2 DAY 1,8,15,22,29,36;STARTED ON 09MAR09;COURSE ASSOCIATED WITH:13APR09
     Dates: start: 20090413, end: 20090413
  2. ERBITUX [Suspect]
     Indication: OESOPHAGEAL SQUAMOUS CELL CARCINOMA
     Dosage: STARTED ON 09MAR09;COURSE ASSOCIATED WITH:13APR09
     Dates: start: 20090413, end: 20090413
  3. TAXOL [Suspect]
     Indication: OESOPHAGEAL SQUAMOUS CELL CARCINOMA
     Dosage: 50MG/M2 DAY 1,8,15,22,29,36,STARTED ON 09MAR09;COURSE ASSOCIATED WITH:13APR09
     Dates: start: 20090413, end: 20090413
  4. RADIATION THERAPY [Suspect]
     Indication: OESOPHAGEAL SQUAMOUS CELL CARCINOMA
     Dosage: 1DOSAGE FORM=50.4GY;NO. OF FRAC:28,NO OF ELAPSED DAYS:37.DATE OF LAST TREATMENT 15APR09
     Dates: start: 20090309
  5. CARAFATE [Concomitant]
  6. DIFLUCAN [Concomitant]
  7. DULCOLAX [Concomitant]
  8. FENTANYL [Concomitant]
  9. MAGNESIUM OXIDE [Concomitant]
  10. MIRALAX [Concomitant]
  11. NEXIUM [Concomitant]
  12. NYSTATIN [Concomitant]
  13. SENOKOT [Concomitant]
  14. ROXANOL [Concomitant]

REACTIONS (4)
  - ANOREXIA [None]
  - DYSPHAGIA [None]
  - HAEMOGLOBIN DECREASED [None]
  - OESOPHAGEAL PAIN [None]
